FAERS Safety Report 9086462 (Version 1)
Quarter: 2013Q1

REPORT INFORMATION
  Report Type: Report from Study
  Country: US (occurrence: US)
  Receive Date: 20130131
  Receipt Date: 20130131
  Transmission Date: 20140127
  Serious: No
  Sender: FDA-Public Use
  Company Number: US-ABBOTT-12P-163-0986458-00

PATIENT
  Age: 25 Year
  Sex: Female

DRUGS (3)
  1. HUMIRA [Suspect]
     Indication: PSORIASIS
     Dates: start: 20120827, end: 20120903
  2. HUMIRA [Suspect]
     Dates: start: 20121011
  3. MULTIVITAMIN [Concomitant]
     Indication: PRODUCT USED FOR UNKNOWN INDICATION
     Dosage: DAILY

REACTIONS (4)
  - Contusion [Recovering/Resolving]
  - Pyrexia [Recovering/Resolving]
  - Tenderness [Recovering/Resolving]
  - Staphylococcal infection [Recovered/Resolved]
